FAERS Safety Report 5006654-3 (Version None)
Quarter: 2006Q2

REPORT INFORMATION
  Report Type: 
  Country: None (occurrence: None)
  Receive Date: 20060516
  Receipt Date: 20060505
  Transmission Date: 20061013
  Serious: Yes (Other)
  Sender: FDA-Public Use
  Company Number: 200603626

PATIENT
  Sex: Female

DRUGS (5)
  1. ALESION TABLET (EPINASTINE HYDROCHLORIDE) TABLET, 10 MG [Suspect]
     Indication: HYPERSENSITIVITY
     Dosage: 20MG, QD, ORAL
     Route: 048
     Dates: start: 20060225, end: 20060302
  2. LOXONIN(LOXOPROFEN SODIUM) [Suspect]
     Indication: PAIN
     Dosage: 240MG, QD, ORAL
     Route: 048
     Dates: start: 20060225, end: 20060302
  3. CLARITHROMYCIN [Suspect]
     Indication: INFECTION
     Dosage: 800MG, QD, ORAL
     Route: 048
     Dates: start: 20060225, end: 20060302
  4. PL (GR)(SALICYLAMIDE) [Suspect]
     Indication: NASOPHARYNGITIS
     Dosage: 4G, QD, ORAL
     Route: 048
     Dates: start: 20060225, end: 20060302
  5. CALONAL (PARACETAMOL) [Suspect]
     Indication: PAIN
     Dosage: 200MG, QD, ORAL
     Route: 048
     Dates: start: 20060225, end: 20060302

REACTIONS (2)
  - ERYTHEMA MULTIFORME [None]
  - HEPATIC FUNCTION ABNORMAL [None]
